FAERS Safety Report 24332377 (Version 1)
Quarter: 2024Q3

REPORT INFORMATION
  Report Type: Spontaneous
  Country: BR (occurrence: BR)
  Receive Date: 20240918
  Receipt Date: 20240918
  Transmission Date: 20241017
  Serious: Yes (Other)
  Sender: ROCHE
  Company Number: BR-002147023-NVSC2024BR174828

PATIENT
  Age: 63 Year
  Sex: Female
  Weight: 52 kg

DRUGS (10)
  1. XOLAIR [Suspect]
     Active Substance: OMALIZUMAB
     Indication: Chronic spontaneous urticaria
     Dosage: 300 MG, QMO (2 SYRINGE)
     Route: 050
     Dates: start: 2018
  2. LENVIMA [Concomitant]
     Active Substance: LENVATINIB
     Indication: Thyroid cancer
     Dosage: UNK (CONCENTRATION: 10 MG E 4 MG) (1 TABLET OF 10MG AND 1 TABLET OF 4MG)
     Route: 050
     Dates: start: 202212
  3. EUTHYROX [Concomitant]
     Active Substance: LEVOTHYROXINE SODIUM
     Indication: Hormone replacement therapy
     Dosage: UNK (1 TABLET ON AN EMPTY STOMACH)
     Route: 050
     Dates: start: 2013
  4. BENICAR [Concomitant]
     Active Substance: OLMESARTAN MEDOXOMIL
     Indication: Blood pressure measurement
     Dosage: 1 DOSAGE FORM, QD (40MG + AMLO 5MG)
     Route: 050
     Dates: start: 2023
  5. METHADONE [Concomitant]
     Active Substance: METHADONE HYDROCHLORIDE
     Indication: Pain
     Dosage: 1 DOSAGE FORM, TID
     Route: 050
     Dates: start: 2023
  6. CANNABIS SATIVA SUBSP. INDICA TOP [Concomitant]
     Active Substance: CANNABIS SATIVA SUBSP. INDICA TOP
     Indication: Pain
     Dosage: 6 DRP, TID (START DATE: 5 MONTHS AGO) (FORMULATION: DROPS)
     Route: 050
  7. CANNABIS SATIVA SUBSP. INDICA TOP [Concomitant]
     Active Substance: CANNABIS SATIVA SUBSP. INDICA TOP
     Indication: Analgesic therapy
  8. INDATER SR [Concomitant]
     Indication: Blood pressure measurement
     Dosage: 1 DOSAGE FORM, QD (START DATE: 4 MONTHS AGO)
     Route: 050
  9. IMPACT [Concomitant]
     Indication: Weight increased
     Dosage: UNK (2 BOTTLES PER DAY) (START DATE: 1 MONTH AGO) LIQUID
     Route: 050
  10. NUTREM [Concomitant]
     Indication: Weight increased
     Dosage: 1 DOSAGE FORM, QD (5 MEASURE) (FORMULATION: POWDER) (START DATE: 1 MONTH AGO)
     Route: 050

REACTIONS (11)
  - Alanine aminotransferase increased [Recovered/Resolved]
  - Aspartate aminotransferase increased [Recovered/Resolved]
  - Tooth injury [Not Recovered/Not Resolved]
  - Malaise [Not Recovered/Not Resolved]
  - Fall [Unknown]
  - Face injury [Recovered/Resolved]
  - Weight decreased [Recovering/Resolving]
  - Hypertension [Recovered/Resolved]
  - Dizziness [Not Recovered/Not Resolved]
  - Functional gastrointestinal disorder [Not Recovered/Not Resolved]
  - Depression [Not Recovered/Not Resolved]

NARRATIVE: CASE EVENT DATE: 20230101
